FAERS Safety Report 25626260 (Version 2)
Quarter: 2025Q3

REPORT INFORMATION
  Report Type: Report from Study
  Country: US (occurrence: US)
  Receive Date: 20250731
  Receipt Date: 20250919
  Transmission Date: 20251020
  Serious: No
  Sender: SUNOVION
  Company Number: US-SUMITOMO PHARMA SWITZERLAND GMBH-2025SPA009345

PATIENT
  Age: 68 Year
  Sex: Male

DRUGS (21)
  1. ORGOVYX [Suspect]
     Active Substance: RELUGOLIX
     Indication: Prostate cancer
     Route: 048
     Dates: start: 20250709, end: 20250709
  2. ORGOVYX [Suspect]
     Active Substance: RELUGOLIX
     Route: 048
  3. ALBUTEROL [Concomitant]
     Active Substance: ALBUTEROL
  4. AMLODIPINE [Concomitant]
     Active Substance: AMLODIPINE BESYLATE
  5. ATORVASTATIN [Concomitant]
     Active Substance: ATORVASTATIN
  6. CALCIUM [Concomitant]
     Active Substance: CALCIUM
  7. ESCITALOPRAM [Concomitant]
     Active Substance: ESCITALOPRAM OXALATE
  8. IBUPROFEN [Concomitant]
     Active Substance: IBUPROFEN
  9. LIDOCAINE [Concomitant]
     Active Substance: LIDOCAINE
  10. MAGNESIUM [Concomitant]
     Active Substance: MAGNESIUM
  11. MELATONIN [Concomitant]
     Active Substance: MELATONIN
  12. METFORMIN [Concomitant]
     Active Substance: METFORMIN HYDROCHLORIDE
  13. NYSTATIN [Concomitant]
     Active Substance: NYSTATIN
  14. OLANZAPINE [Concomitant]
     Active Substance: OLANZAPINE
  15. SPIRONOLACTONE [Concomitant]
     Active Substance: SPIRONOLACTONE
  16. VITAMIN B [Concomitant]
     Active Substance: VITAMIN B
  17. TAMSULOSIN [Concomitant]
     Active Substance: TAMSULOSIN
  18. TIZANIDINE [Concomitant]
     Active Substance: TIZANIDINE
  19. MAGNESIUM GLUCONATE [Concomitant]
     Active Substance: MAGNESIUM GLUCONATE
  20. MIRALAX [Concomitant]
     Active Substance: POLYETHYLENE GLYCOL 3350
  21. VITAMIN B COMPLEX [Concomitant]
     Active Substance: CYANOCOBALAMIN\DEXPANTHENOL\NIACINAMIDE\PYRIDOXINE HYDROCHLORIDE\RIBOFLAVIN 5^-PHOSPHATE SODIUM\THIA

REACTIONS (2)
  - Hot flush [Unknown]
  - Back pain [Unknown]
